FAERS Safety Report 11774369 (Version 3)
Quarter: 2016Q1

REPORT INFORMATION
  Report Type: Spontaneous
  Country: US (occurrence: US)
  Receive Date: 20151124
  Receipt Date: 20160104
  Transmission Date: 20160525
  Serious: Yes (Hospitalization)
  Sender: FDA-Public Use
  Company Number: US-PFIZER INC-2015397179

PATIENT
  Age: 62 Year
  Sex: Male

DRUGS (10)
  1. CINNAMON. [Concomitant]
     Active Substance: CINNAMON
  2. CRANBERRY. [Concomitant]
     Active Substance: CRANBERRY
  3. SOMAVERT [Suspect]
     Active Substance: PEGVISOMANT
     Indication: ACROMEGALY
     Dosage: 10 MG, DAILY (UNDER THE SKIN)
  4. LEXAPRO [Concomitant]
     Active Substance: ESCITALOPRAM OXALATE
  5. VITAMIN D [Concomitant]
     Active Substance: CHOLECALCIFEROL
  6. LIPITOR [Concomitant]
     Active Substance: ATORVASTATIN CALCIUM
  7. SOMAVERT [Suspect]
     Active Substance: PEGVISOMANT
     Dosage: 20 MG, DAILY
  8. FLOMAX [Concomitant]
     Active Substance: TAMSULOSIN HYDROCHLORIDE
  9. VITAMIN C [Concomitant]
     Active Substance: ASCORBIC ACID
  10. LANSOPRAZOLE. [Concomitant]
     Active Substance: LANSOPRAZOLE

REACTIONS (5)
  - Drug ineffective [Unknown]
  - Tension [Unknown]
  - Chest discomfort [Unknown]
  - Headache [Unknown]
  - Endocarditis bacterial [Unknown]

NARRATIVE: CASE EVENT DATE: 20151104
